FAERS Safety Report 18450086 (Version 1)
Quarter: 2020Q4

REPORT INFORMATION
  Report Type: Spontaneous
  Country: CA (occurrence: CA)
  Receive Date: 20201030
  Receipt Date: 20201030
  Transmission Date: 20210114
  Serious: Yes (Hospitalization, Other)
  Sender: FDA-Public Use
  Company Number: CA-JNJFOC-20201040823

PATIENT
  Age: 56 Year
  Sex: Male

DRUGS (9)
  1. GRAVOL [Concomitant]
     Active Substance: DIMENHYDRINATE
     Route: 065
  2. ONDANSETRON HYDROCHLORIDE. [Concomitant]
     Active Substance: ONDANSETRON HYDROCHLORIDE
  3. INFLIXIMAB, RECOMBINANT [Suspect]
     Active Substance: INFLIXIMAB
     Indication: PRODUCT USED FOR UNKNOWN INDICATION
     Route: 042
  4. PREDNISONE. [Concomitant]
     Active Substance: PREDNISONE
  5. DALTEPARIN SODIUM [Concomitant]
     Active Substance: DALTEPARIN SODIUM
  6. IRON SULPHATE [Concomitant]
     Active Substance: FERROUS SULFATE ANHYDROUS
  7. ACETAMINOPHEN. [Concomitant]
     Active Substance: ACETAMINOPHEN
     Route: 065
  8. MELATONIN [Concomitant]
     Active Substance: MELATONIN
  9. ERGOCALCIFEROL. [Concomitant]
     Active Substance: ERGOCALCIFEROL

REACTIONS (21)
  - Cough [Unknown]
  - Musculoskeletal injury [Unknown]
  - Off label use [Unknown]
  - Increased appetite [Unknown]
  - Weight decreased [Unknown]
  - Abdominal pain lower [Unknown]
  - Condition aggravated [Unknown]
  - Night sweats [Unknown]
  - Abnormal behaviour [Unknown]
  - Bowel movement irregularity [Unknown]
  - Intestinal obstruction [Unknown]
  - Pneumonia [Unknown]
  - Influenza [Unknown]
  - Enterocolonic fistula [Unknown]
  - Abdominal mass [Unknown]
  - Psychomotor hyperactivity [Unknown]
  - Pyrexia [Unknown]
  - Inflammatory marker increased [Unknown]
  - Vomiting [Unknown]
  - Abdominal tenderness [Unknown]
  - Dyspnoea [Unknown]
